FAERS Safety Report 6478193-4 (Version None)
Quarter: 2009Q4

REPORT INFORMATION
  Report Type: 
  Country: None (occurrence: None)
  Receive Date: 20091202
  Receipt Date: 20050203
  Transmission Date: 20100525
  Serious: Yes (Hospitalization)
  Sender: FDA-Public Use
  Company Number: 2004JP002285

PATIENT
  Age: 60 Year
  Sex: Female
  Weight: 47 kg

DRUGS (10)
  1. FUNGUARD (MICAFUNGIN) INJECTION [Suspect]
     Indication: BRONCHOPULMONARY ASPERGILLOSIS
     Dosage: 300.00 MG, UID/QD, IV NOS
     Route: 042
     Dates: start: 20041122, end: 20041204
  2. LEVOFLOXACIN [Concomitant]
  3. SPIROPENT (CLENBUTEROL HYDROCHLORIDE) [Concomitant]
  4. THEO-DUR [Concomitant]
  5. CLARITHROMYCIN [Concomitant]
  6. PREDNISOLONE [Concomitant]
  7. SINGULAIR [Concomitant]
  8. FAMOTIDINE [Concomitant]
  9. NORVASC [Concomitant]
  10. AMOBAN (ZOPICLONE) [Concomitant]

REACTIONS (2)
  - PYREXIA [None]
  - TOXIC SKIN ERUPTION [None]
